FAERS Safety Report 9943484 (Version 1)
Quarter: 2014Q1

REPORT INFORMATION
  Report Type: Report from Study
  Country: US (occurrence: US)
  Receive Date: 20140303
  Receipt Date: 20140303
  Transmission Date: 20141002
  Serious: No
  Sender: FDA-Public Use
  Company Number: US-ABBVIE-13P-163-1048075-00

PATIENT
  Age: 57 Year
  Sex: Female
  Weight: 65.83 kg

DRUGS (21)
  1. HUMIRA [Suspect]
     Indication: CROHN^S DISEASE
     Dates: start: 201211, end: 201301
  2. HUMIRA [Suspect]
     Dates: start: 201301
  3. PENTASA [Concomitant]
     Indication: CROHN^S DISEASE
  4. MERCAPTOPRINE [Concomitant]
     Indication: CROHN^S DISEASE
  5. RYTHMOL [Concomitant]
     Indication: CORONARY ARTERY DISEASE
  6. WAFARIN [Concomitant]
     Indication: ANTICOAGULANT THERAPY
  7. METOPROLOL [Concomitant]
     Indication: BLOOD PRESSURE
  8. LISINOPRIL [Concomitant]
     Indication: BLOOD PRESSURE
  9. HYDROCHLOROTHIAZIDE [Concomitant]
     Indication: BLOOD PRESSURE
  10. CYMBALTA [Concomitant]
     Indication: NERVOUSNESS
  11. CYMBALTA [Concomitant]
     Indication: FIBROMYALGIA
  12. TRAMADOL [Concomitant]
     Indication: FIBROMYALGIA
  13. HYOSCYAMINE [Concomitant]
     Indication: MUSCLE SPASMS
  14. PREVACID [Concomitant]
     Indication: GASTRIC DISORDER
  15. VITAMIN E [Concomitant]
     Indication: PRODUCT USED FOR UNKNOWN INDICATION
  16. FOLIC ACID [Concomitant]
     Indication: PRODUCT USED FOR UNKNOWN INDICATION
  17. VITAMIN B COMPLEX [Concomitant]
     Indication: PRODUCT USED FOR UNKNOWN INDICATION
  18. VITAMIN B12 [Concomitant]
     Indication: NUTRITIONAL SUPPLEMENTATION
     Dosage: SHOTS
  19. VITAMIN D3 [Concomitant]
     Indication: PRODUCT USED FOR UNKNOWN INDICATION
  20. MULTIVITAMIN [Concomitant]
     Indication: PRODUCT USED FOR UNKNOWN INDICATION
  21. OMEGA 369 [Concomitant]
     Indication: CORONARY ARTERY DISEASE

REACTIONS (4)
  - Injection site pain [Not Recovered/Not Resolved]
  - Injection site urticaria [Not Recovered/Not Resolved]
  - Injection site urticaria [Not Recovered/Not Resolved]
  - Headache [Not Recovered/Not Resolved]
